FAERS Safety Report 22341297 (Version 2)
Quarter: 2023Q2

REPORT INFORMATION
  Report Type: Report from Study
  Country: CN (occurrence: CN)
  Receive Date: 20230518
  Receipt Date: 20230607
  Transmission Date: 20230722
  Serious: Yes (Hospitalization)
  Sender: FDA-Public Use
  Company Number: CN-ANTENGENE-20230501659

PATIENT
  Age: 53 Year
  Sex: Female
  Weight: 65 kg

DRUGS (3)
  1. SELINEXOR [Suspect]
     Active Substance: SELINEXOR
     Indication: Lymphoma
     Dosage: 60 MG, WEEKLY
     Route: 048
     Dates: start: 20230504, end: 20230504
  2. TISLELIZUMAB [Suspect]
     Active Substance: TISLELIZUMAB
     Indication: Lymphoma
     Dosage: 200 MG, ONCE EVERY 3 WEEKS
     Route: 041
     Dates: start: 20230504, end: 20230504
  3. OMEPRAZOLE [Concomitant]
     Active Substance: OMEPRAZOLE
     Dosage: 20 MG, QD
     Route: 048
     Dates: start: 20230505

REACTIONS (3)
  - Pancreatitis acute [Recovered/Resolved]
  - Cholelithiasis [Recovered/Resolved with Sequelae]
  - Cholecystitis acute [Recovered/Resolved with Sequelae]

NARRATIVE: CASE EVENT DATE: 20230511
